FAERS Safety Report 15898935 (Version 1)
Quarter: 2019Q1

REPORT INFORMATION
  Report Type: Spontaneous
  Country: FR (occurrence: FR)
  Receive Date: 20190201
  Receipt Date: 20190201
  Transmission Date: 20190417
  Serious: Yes (Hospitalization, Other)
  Sender: FDA-Public Use
  Company Number: FR-AUROBINDO-AUR-APL-2019-004159

PATIENT
  Sex: Male
  Weight: 101 kg

DRUGS (1)
  1. TRAMADOL. [Suspect]
     Active Substance: TRAMADOL
     Indication: BACK PAIN
     Dosage: 900 MILLIGRAM, ONCE A DAY
     Route: 048
     Dates: start: 201401, end: 20171224

REACTIONS (2)
  - Epilepsy [Recovered/Resolved]
  - Dependence [Recovering/Resolving]

NARRATIVE: CASE EVENT DATE: 201402
